FAERS Safety Report 5869785-1 (Version None)
Quarter: 2008Q3

REPORT INFORMATION
  Report Type: 
  Country: None (occurrence: None)
  Receive Date: 20080904
  Receipt Date: 20080829
  Transmission Date: 20090109
  Serious: Yes (Other)
  Sender: FDA-Public Use
  Company Number: GB-TEVA-176754ISR

PATIENT
  Age: 60 Year
  Sex: Female

DRUGS (5)
  1. FLUOXETINE [Suspect]
     Indication: DEPRESSION
  2. PAROXETINE HCL [Suspect]
     Indication: DEPRESSION
  3. SERTRALINE [Suspect]
     Indication: DEPRESSION
  4. ESCITALOPRAM [Suspect]
     Indication: DEPRESSION
  5. VENLAFAXINE HCL [Suspect]
     Indication: DEPRESSION

REACTIONS (1)
  - DISTURBANCE IN SEXUAL AROUSAL [None]
